FAERS Safety Report 6522542-5 (Version None)
Quarter: 2009Q4

REPORT INFORMATION
  Report Type: 
  Country: None (occurrence: None)
  Receive Date: 20091230
  Receipt Date: 20091217
  Transmission Date: 20100525
  Serious: Yes (Hospitalization)
  Sender: FDA-Public Use
  Company Number: FR-CELGENEUS-056-C5013-09121521

PATIENT
  Sex: Male
  Weight: 70 kg

DRUGS (9)
  1. CC-5013 [Suspect]
     Indication: MULTIPLE MYELOMA
     Route: 048
     Dates: start: 20091207, end: 20091217
  2. CC-5013 [Suspect]
     Route: 048
     Dates: start: 20090902
  3. DEXAMETHASONE [Suspect]
     Indication: MULTIPLE MYELOMA
     Route: 065
     Dates: start: 20091207, end: 20091217
  4. DEXAMETHASONE [Suspect]
     Route: 065
     Dates: start: 20090902
  5. KEPPRA [Concomitant]
     Indication: EPILEPSY
     Route: 048
     Dates: start: 20070701
  6. TEMERIT [Concomitant]
     Route: 048
     Dates: start: 19940101
  7. PRETERAX [Concomitant]
     Route: 048
     Dates: start: 19940101
  8. HEMIGOXINE [Concomitant]
     Route: 048
     Dates: start: 20010101
  9. HEMIGOXINE [Concomitant]

REACTIONS (2)
  - GENERALISED OEDEMA [None]
  - HYPOALBUMINAEMIA [None]
